FAERS Safety Report 6393710-0 (Version None)
Quarter: 2009Q4

REPORT INFORMATION
  Report Type: 
  Country: None (occurrence: None)
  Receive Date: 20091008
  Receipt Date: 20091002
  Transmission Date: 20100525
  Serious: Yes (Hospitalization, Other)
  Sender: FDA-Public Use
  Company Number: JP-BAYER-200913708BYL

PATIENT
  Age: 61 Year
  Sex: Male

DRUGS (2)
  1. NEXAVAR [Suspect]
     Indication: RENAL CELL CARCINOMA STAGE IV
     Dosage: TOTAL DAILY DOSE: 400 MG  UNIT DOSE: 200 MG
     Route: 048
     Dates: start: 20090625
  2. NEXAVAR [Suspect]
     Route: 048
     Dates: end: 20090917

REACTIONS (5)
  - BLOOD POTASSIUM INCREASED [None]
  - CONVULSION [None]
  - HEMIPLEGIA [None]
  - NAUSEA [None]
  - VOMITING [None]
